FAERS Safety Report 18557490 (Version 3)
Quarter: 2020Q4

REPORT INFORMATION
  Report Type: Spontaneous
  Country: NL (occurrence: NL)
  Receive Date: 20201130
  Receipt Date: 20201208
  Transmission Date: 20210114
  Serious: No
  Sender: FDA-Public Use
  Company Number: NL-ROCHE-2721755

PATIENT
  Sex: Female

DRUGS (1)
  1. OCREVUS [Suspect]
     Active Substance: OCRELIZUMAB
     Indication: RELAPSING-REMITTING MULTIPLE SCLEROSIS
     Dosage: THE MOST RECENT DOSE OF OCRELIZUMAB: 25/AUG/2020
     Route: 065
     Dates: start: 20200825

REACTIONS (3)
  - COVID-19 [Unknown]
  - Pyrexia [Unknown]
  - Malaise [Unknown]
